FAERS Safety Report 12242409 (Version 1)
Quarter: 2016Q2

REPORT INFORMATION
  Report Type: Spontaneous
  Country: US (occurrence: US)
  Receive Date: 20160406
  Receipt Date: 20160406
  Transmission Date: 20160815
  Serious: Yes (Hospitalization)
  Sender: FDA-Public Use
  Company Number: US-JNJFOC-20160402638

PATIENT
  Sex: Male

DRUGS (1)
  1. IMBRUVICA [Suspect]
     Active Substance: IBRUTINIB
     Indication: WALDENSTROM^S MACROGLOBULINAEMIA
     Route: 048
     Dates: start: 2015

REACTIONS (5)
  - Hyperviscosity syndrome [Unknown]
  - Haemorrhage [Unknown]
  - Treatment noncompliance [Not Recovered/Not Resolved]
  - Disease progression [Unknown]
  - Lung infiltration [Unknown]
